FAERS Safety Report 23302139 (Version 2)
Quarter: 2023Q4

REPORT INFORMATION
  Report Type: Spontaneous
  Country: AT (occurrence: AT)
  Receive Date: 20231215
  Receipt Date: 20231226
  Transmission Date: 20240110
  Serious: Yes (Death)
  Sender: FDA-Public Use
  Company Number: AT-SERVIER-S23014105

PATIENT
  Age: 56 Year
  Sex: Male
  Weight: 80 kg

DRUGS (4)
  1. LEUCOVORIN [Suspect]
     Active Substance: LEUCOVORIN\LEUCOVORIN CALCIUM
     Indication: Pancreatic carcinoma metastatic
     Dosage: 400 MG/M2, EVERY 2 WEEKS
     Route: 042
     Dates: start: 20230915, end: 20230929
  2. OXALIPLATIN [Suspect]
     Active Substance: OXALIPLATIN
     Indication: Pancreatic carcinoma metastatic
     Dosage: 60 MG/M2, EVERY 2 WEEKS
     Route: 042
     Dates: start: 20230915, end: 20230929
  3. FLUOROURACIL [Suspect]
     Active Substance: FLUOROURACIL
     Indication: Pancreatic carcinoma metastatic
     Dosage: 2400 MG/M2, EVERY 2 WEEKS
     Route: 042
     Dates: start: 20230915, end: 20230929
  4. ONIVYDE [Suspect]
     Active Substance: IRINOTECAN HYDROCHLORIDE
     Indication: Pancreatic carcinoma metastatic
     Dosage: 50 MG/M2, EVERY 2 WEEKS
     Route: 042
     Dates: start: 20230915, end: 20230929

REACTIONS (6)
  - Sepsis [Fatal]
  - Abdominal discomfort [Fatal]
  - Intestinal perforation [Fatal]
  - Tumour lysis syndrome [Fatal]
  - Product use issue [Recovered/Resolved]
  - Off label use [Recovered/Resolved]

NARRATIVE: CASE EVENT DATE: 20230915
